FAERS Safety Report 23709831 (Version 6)
Quarter: 2024Q2

REPORT INFORMATION
  Report Type: Report from Study
  Country: KR (occurrence: KR)
  Receive Date: 20240405
  Receipt Date: 20240514
  Transmission Date: 20240716
  Serious: Yes (Death)
  Sender: FDA-Public Use
  Company Number: KR-ABBVIE-5705837

PATIENT
  Age: 74 Year
  Sex: Male
  Weight: 70 kg

DRUGS (22)
  1. VENCLEXTA [Suspect]
     Active Substance: VENETOCLAX
     Indication: Acute myeloid leukaemia
     Route: 048
     Dates: start: 20240229, end: 20240229
  2. VENCLEXTA [Suspect]
     Active Substance: VENETOCLAX
     Indication: Acute myeloid leukaemia
     Route: 048
     Dates: start: 20240301, end: 20240301
  3. VENCLEXTA [Suspect]
     Active Substance: VENETOCLAX
     Indication: Acute myeloid leukaemia
     Route: 048
     Dates: start: 20240326, end: 20240326
  4. VENCLEXTA [Suspect]
     Active Substance: VENETOCLAX
     Indication: Acute myeloid leukaemia
     Route: 048
     Dates: start: 20240302, end: 20240302
  5. VENCLEXTA [Suspect]
     Active Substance: VENETOCLAX
     Indication: Acute myeloid leukaemia
     Route: 048
     Dates: start: 20240228, end: 20240228
  6. DACOGEN [Concomitant]
     Active Substance: DECITABINE
     Indication: Acute myeloid leukaemia
     Route: 042
     Dates: start: 20240228, end: 20240303
  7. AMINO ACIDS\DEXTROSE\ELECTROLYTES NOS\SOYBEAN OIL\VITAMINS [Concomitant]
     Active Substance: AMINO ACIDS\DEXTROSE\ELECTROLYTES NOS\SOYBEAN OIL\VITAMINS
     Indication: Nutritional supplementation
     Route: 042
     Dates: start: 20240301, end: 20240331
  8. LEVOFLOXACIN [Concomitant]
     Active Substance: LEVOFLOXACIN
     Indication: Pneumonia
     Dosage: 500 MG
     Route: 048
     Dates: start: 20240227, end: 20240228
  9. Sinil folic acid [Concomitant]
     Indication: Anaemia prophylaxis
     Dosage: 1 MG
     Route: 048
     Dates: start: 20240305, end: 20240330
  10. THEOBROMINE [Concomitant]
     Active Substance: THEOBROMINE
     Indication: Pneumonia
     Dosage: 300 MG
     Route: 048
     Dates: start: 20240223, end: 20240330
  11. LENOGRASTIM [Concomitant]
     Active Substance: LENOGRASTIM
     Indication: Acute myeloid leukaemia
     Dosage: 250MCG
     Route: 042
     Dates: start: 20240329, end: 20240330
  12. BISOPROLOL FUMARATE [Concomitant]
     Active Substance: BISOPROLOL FUMARATE
     Indication: Hypertension
     Dosage: 2.5MG
     Route: 048
     Dates: end: 20240330
  13. ACETAMINOPHEN [Concomitant]
     Active Substance: ACETAMINOPHEN
     Indication: Pyrexia
     Dosage: 650MG?8 HOURS?FREQUENCY: PRN
     Route: 048
     Dates: start: 20240228, end: 20240329
  14. NORVASC [Concomitant]
     Active Substance: AMLODIPINE BESYLATE
     Indication: Hypertension
     Dosage: 5 MG
     Route: 048
     Dates: end: 20240330
  15. NOXAFIL [Concomitant]
     Active Substance: POSACONAZOLE
     Indication: Infection prophylaxis
     Dosage: 100MG? GASTRO RESISTANT
     Route: 048
     Dates: start: 20240228, end: 20240324
  16. MAXIPIME [Concomitant]
     Active Substance: CEFEPIME HYDROCHLORIDE
     Indication: Pneumonia
     Dosage: 1G
     Route: 042
     Dates: start: 20240228, end: 20240329
  17. THRUPASS ODT [Concomitant]
     Indication: Benign prostatic hyperplasia
     Dosage: 8MG
     Route: 048
     Dates: end: 20240330
  18. PRIVITUSS [Concomitant]
     Indication: Pneumonia
     Dosage: TIME INTERVAL: 0.33333333 DAYS: SUSP
     Route: 048
     Dates: start: 20240312, end: 20240330
  19. PROPACETAMOL HYDROCHLORIDE [Concomitant]
     Active Substance: PROPACETAMOL HYDROCHLORIDE
     Indication: Pyrexia
     Dosage: FREQUENCY TEXT: PRN
     Route: 042
     Dates: start: 20240228, end: 20240330
  20. ONDANSETRON [Concomitant]
     Active Substance: ONDANSETRON
     Indication: Prophylaxis of nausea and vomiting
     Dosage: UNIT DOSE: 1 VIAL?INJ 4ML (VIAL)
     Route: 042
     Dates: start: 20240228, end: 20240301
  21. COUGH SYRUP [Concomitant]
     Active Substance: DEXTROMETHORPHAN HYDROBROMIDE\GUAIFENESIN
     Indication: Pneumonia
     Dosage: TIME INTERVAL: 0.33333333 DAYS
     Route: 048
     Dates: start: 20240223, end: 20240312
  22. CODEINE PHOSPHATE [Concomitant]
     Active Substance: CODEINE PHOSPHATE
     Indication: Pneumonia
     Route: 048
     Dates: start: 20240228, end: 20240324

REACTIONS (1)
  - Pneumonia fungal [Fatal]

NARRATIVE: CASE EVENT DATE: 20240325
